FAERS Safety Report 4891957-3 (Version None)
Quarter: 2006Q1

REPORT INFORMATION
  Report Type: 
  Country: None (occurrence: None)
  Receive Date: 20060124
  Receipt Date: 20060110
  Transmission Date: 20060701
  Serious: Yes (Hospitalization)
  Sender: FDA-Public Use
  Company Number: 220621

PATIENT
  Age: 61 Year
  Sex: Male

DRUGS (2)
  1. AVASTIN [Suspect]
     Indication: COLORECTAL CANCER METASTATIC
     Dosage: 472 MG, Q2W, INTRAVENOUS
     Route: 042
     Dates: start: 20050914, end: 20051202
  2. ANTIBIOTICS (ANTIBIOTICS NOS) [Concomitant]

REACTIONS (4)
  - AORTIC DISSECTION [None]
  - CONDITION AGGRAVATED [None]
  - HYPERTENSION [None]
  - IMPAIRED HEALING [None]
